FAERS Safety Report 15034688 (Version 1)
Quarter: 2018Q2

REPORT INFORMATION
  Report Type: Spontaneous
  Country: CA (occurrence: CA)
  Receive Date: 20180620
  Receipt Date: 20180620
  Transmission Date: 20180711
  Serious: Yes (Other)
  Sender: FDA-Public Use
  Company Number: CA-ASTRAZENECA-2018SE77345

PATIENT
  Age: 68 Year
  Sex: Female
  Weight: 83.9 kg

DRUGS (10)
  1. RAMIPRIL. [Concomitant]
     Active Substance: RAMIPRIL
  2. SYNTHROID [Concomitant]
     Active Substance: LEVOTHYROXINE SODIUM
  3. TYLENOL [Concomitant]
     Active Substance: ACETAMINOPHEN
  4. VITAMIN D [Concomitant]
     Active Substance: CHOLECALCIFEROL
  5. FORXIGA [Suspect]
     Active Substance: DAPAGLIFLOZIN
     Indication: DIABETES MELLITUS
     Route: 048
  6. METFORMIN [Concomitant]
     Active Substance: METFORMIN HYDROCHLORIDE
  7. ASPIRIN. [Concomitant]
     Active Substance: ASPIRIN
  8. GLYBURIDE. [Concomitant]
     Active Substance: GLYBURIDE
  9. CALCIUM [Concomitant]
     Active Substance: CALCIUM
  10. ROSUVASTATIN. [Concomitant]
     Active Substance: ROSUVASTATIN

REACTIONS (7)
  - Pollakiuria [Recovering/Resolving]
  - Bladder operation [Recovering/Resolving]
  - Hysterectomy [Recovering/Resolving]
  - Lung neoplasm malignant [Recovering/Resolving]
  - Diabetic ketoacidosis [Recovering/Resolving]
  - Urinary incontinence [Recovering/Resolving]
  - Bladder cancer [Recovering/Resolving]
